FAERS Safety Report 5678500-6 (Version None)
Quarter: 2008Q1

REPORT INFORMATION
  Report Type: 
  Country: None (occurrence: None)
  Receive Date: 20080325
  Receipt Date: 20080318
  Transmission Date: 20080703
  Serious: Yes (Death)
  Sender: FDA-Public Use
  Company Number: US-ASTRAZENECA-2008UW01942

PATIENT
  Age: 89 Year
  Sex: Male

DRUGS (2)
  1. PULMICORT [Suspect]
     Indication: EMPHYSEMA
     Route: 055
  2. ALBUTEROL [Concomitant]
     Indication: EMPHYSEMA

REACTIONS (1)
  - PROSTATE CANCER [None]
